FAERS Safety Report 6925938-2 (Version None)
Quarter: 2010Q3

REPORT INFORMATION
  Report Type: 
  Country: None (occurrence: None)
  Receive Date: 20100816
  Receipt Date: 20100811
  Transmission Date: 20110219
  Serious: Yes (Death, Other)
  Sender: FDA-Public Use
  Company Number: PHFR2010GB02062

PATIENT
  Age: 29 Year

DRUGS (5)
  1. CLOZAPINE [Suspect]
     Indication: SCHIZOPHRENIA
     Dosage: 600 MG, UNK
     Route: 048
     Dates: end: 20100713
  2. AMISULPRIDE [Suspect]
     Indication: SCHIZOPHRENIA
     Dosage: 200 MG, UNK
     Dates: end: 20100713
  3. CYCLIZINE [Concomitant]
     Indication: VOMITING
     Dosage: 50 MG, UNK
     Route: 042
  4. LORAZEPAM [Concomitant]
     Indication: SCHIZOPHRENIA
     Dosage: 1 MG, UNK
     Route: 048
  5. AMIODARONE [Concomitant]

REACTIONS (6)
  - ATRIAL TACHYCARDIA [None]
  - HAEMODYNAMIC INSTABILITY [None]
  - LEFT VENTRICULAR DYSFUNCTION [None]
  - MYOPATHY [None]
  - SUPRAVENTRICULAR TACHYCARDIA [None]
  - TACHYCARDIA [None]
